FAERS Safety Report 6457477-X (Version None)
Quarter: 2009Q4

REPORT INFORMATION
  Report Type: 
  Country: None (occurrence: None)
  Receive Date: 20091125
  Receipt Date: 20091019
  Transmission Date: 20100525
  Serious: Yes (Other)
  Sender: FDA-Public Use
  Company Number: SE-SANOFI-AVENTIS-200921887GDDC

PATIENT
  Age: 41 Year
  Sex: Female

DRUGS (4)
  1. DOCETAXEL [Suspect]
     Dosage: DOSE AS USED: CYCLE 1 DOSE UNIT: 75 MG/M**2
     Route: 042
  2. DOCETAXEL [Suspect]
     Dosage: DOSE AS USED: CYCLE 6 DOSE UNIT: 60 MG/M**2
     Route: 042
  3. ANTINEOPLASTIC AGENTS [Suspect]
     Dosage: DOSE AS USED: 37.5 MG/ DAY FOR 2 WEEKS FOLLOWED BY ONE WEEK OFF TREATMENT
     Route: 048
  4. ANTINEOPLASTIC AGENTS [Suspect]
     Dosage: DOSE AS USED: 37.5 MG/ DAY FOR 2 WEEKS FOLLOWED BY ONE WEEK OFF TREATMENT
     Route: 048

REACTIONS (9)
  - ADRENAL INSUFFICIENCY [None]
  - DIARRHOEA [None]
  - FATIGUE [None]
  - FEBRILE NEUTROPENIA [None]
  - FLUID RETENTION [None]
  - HYPONATRAEMIA [None]
  - MYALGIA [None]
  - NAUSEA [None]
  - NEUROPATHY PERIPHERAL [None]
